FAERS Safety Report 24632374 (Version 2)
Quarter: 2025Q1

REPORT INFORMATION
  Report Type: Spontaneous
  Country: CN (occurrence: CN)
  Receive Date: 20241118
  Receipt Date: 20250228
  Transmission Date: 20250409
  Serious: Yes (Other)
  Sender: NOVARTIS
  Company Number: CN-002147023-NVSC2024CN221404

PATIENT

DRUGS (1)
  1. COSENTYX [Suspect]
     Active Substance: SECUKINUMAB
     Indication: Psoriasis
     Route: 065

REACTIONS (6)
  - Depressed level of consciousness [Unknown]
  - Lacunar infarction [Unknown]
  - Demyelination [Unknown]
  - Cerebral atrophy [Unknown]
  - Pneumonitis [Unknown]
  - Pleural disorder [Unknown]
